FAERS Safety Report 4855209-X (Version None)
Quarter: 2005Q4

REPORT INFORMATION
  Report Type: 
  Country: None (occurrence: None)
  Receive Date: 20051215
  Receipt Date: 20050907
  Transmission Date: 20060501
  Serious: Yes (Hospitalization, Disabling)
  Sender: FDA-Public Use
  Company Number: US-MERCK-0509USA00936

PATIENT
  Age: 69 Year
  Sex: Female
  Weight: 86 kg

DRUGS (12)
  1. VIOXX [Suspect]
     Indication: OSTEOARTHRITIS
     Route: 048
     Dates: start: 20001218, end: 20040901
  2. FOSAMAX [Concomitant]
     Indication: OSTEOPOROSIS
     Route: 065
  3. PREMARIN [Concomitant]
     Indication: HORMONE REPLACEMENT THERAPY
     Route: 048
     Dates: start: 19800101, end: 20030101
  4. PREMARIN [Concomitant]
     Indication: HOT FLUSH
     Route: 048
     Dates: start: 19800101, end: 20030101
  5. SYNTHROID [Concomitant]
     Indication: HYPOTHYROIDISM
     Route: 048
  6. ACTOS [Concomitant]
     Indication: DIABETES MELLITUS
     Route: 065
  7. HUMALOG [Concomitant]
     Indication: DIABETES MELLITUS
     Route: 065
  8. HUMULIN L (INSULIN HUMAN ZINC) [Concomitant]
     Indication: DIABETES MELLITUS
     Route: 065
  9. AUGMENTIN [Concomitant]
     Route: 065
  10. CIPRO [Concomitant]
     Route: 065
  11. AMOXICILLIN [Concomitant]
     Route: 065
  12. INSULIN [Concomitant]
     Route: 065

REACTIONS (13)
  - ANIMAL BITE [None]
  - BLOOD CHOLESTEROL INCREASED [None]
  - BLOOD TRIGLYCERIDES INCREASED [None]
  - CORONARY ARTERY DISEASE [None]
  - DRUG INTOLERANCE [None]
  - DYSPEPSIA [None]
  - HYPERTENSION [None]
  - ISCHAEMIC CARDIOMYOPATHY [None]
  - MIGRAINE WITH AURA [None]
  - MYOCARDIAL INFARCTION [None]
  - OEDEMA PERIPHERAL [None]
  - STRESS [None]
  - VENTRICULAR HYPERTROPHY [None]
